FAERS Safety Report 18762417 (Version 1)
Quarter: 2021Q1

REPORT INFORMATION
  Report Type: Spontaneous
  Country: US (occurrence: US)
  Receive Date: 20210119
  Receipt Date: 20210119
  Transmission Date: 20210419
  Serious: No
  Sender: FDA-Public Use
  Company Number: None

PATIENT
  Age: 71 Year
  Sex: Female
  Weight: 95.9 kg

DRUGS (13)
  1. ASPIRIN. [Concomitant]
     Active Substance: ASPIRIN
  2. FAMOTIDINE. [Concomitant]
     Active Substance: FAMOTIDINE
  3. HYDROCORTISONE. [Concomitant]
     Active Substance: HYDROCORTISONE
  4. OXYCODONE [Concomitant]
     Active Substance: OXYCODONE
  5. INLYTA [Suspect]
     Active Substance: AXITINIB
     Indication: MALIGNANT NEOPLASM OF RENAL PELVIS
     Route: 048
     Dates: start: 20201210, end: 20210119
  6. ZOFRAN [Concomitant]
     Active Substance: ONDANSETRON HYDROCHLORIDE
  7. MVI [Concomitant]
     Active Substance: VITAMINS
  8. TYLENOL [Concomitant]
     Active Substance: ACETAMINOPHEN
  9. BENADRYL [Concomitant]
     Active Substance: DIPHENHYDRAMINE HYDROCHLORIDE
  10. PANTOPRAZOLE [Concomitant]
     Active Substance: PANTOPRAZOLE
  11. BIOTIN [Concomitant]
     Active Substance: BIOTIN
  12. SENNA [Concomitant]
     Active Substance: SENNA LEAF\SENNOSIDES\SENNOSIDES A AND B
  13. INLYTA [Suspect]
     Active Substance: AXITINIB
     Indication: RENAL CANCER
     Route: 048
     Dates: start: 20201210, end: 20210119

REACTIONS (1)
  - Hospice care [None]

NARRATIVE: CASE EVENT DATE: 20210119
